FAERS Safety Report 7504194-0 (Version None)
Quarter: 2011Q2

REPORT INFORMATION
  Report Type: 
  Country: None (occurrence: None)
  Receive Date: 20110525
  Receipt Date: 20091120
  Transmission Date: 20111010
  Serious: Yes (Death, Other)
  Sender: FDA-Public Use
  Company Number: US-BAYER-200940040NA

PATIENT
  Age: 80 Year
  Sex: Female
  Weight: 90 kg

DRUGS (14)
  1. TRASYLOL [Suspect]
     Indication: CORONARY ARTERY BYPASS
     Dosage: UNK
     Route: 042
     Dates: start: 20070827, end: 20070827
  2. VASOPRESSIN [Concomitant]
     Dosage: 0.4ML/HR
     Route: 042
  3. PLATELETS [Concomitant]
     Dosage: UNK
     Dates: start: 20070827
  4. COUMADIN [Concomitant]
     Indication: ATRIAL FIBRILLATION
     Dosage: 4 MG, QD
     Route: 048
  5. FUROSEMIDE [Concomitant]
     Dosage: 40 MG, QD
     Route: 048
  6. FENTANYL [Concomitant]
     Dosage: 25MCG X 3
     Route: 042
  7. OMNIPAQUE 140 [Concomitant]
  8. AMIODARONE HCL [Concomitant]
     Route: 042
  9. TRASYLOL [Suspect]
     Indication: TRICUSPID VALVE REPAIR
  10. MILRINONE [Concomitant]
     Dosage: 0.5MCG/KG/HOUR
     Route: 042
  11. ENALAPRIL MALEATE [Concomitant]
     Dosage: 20MG 2 TABLETS DAILY
     Route: 048
  12. NIFEDIPINE [Concomitant]
     Dosage: 60MG TWO TABLETS DAILY
     Route: 048
  13. RED BLOOD CELLS [Concomitant]
     Dosage: UNK
     Dates: start: 20070827
  14. PLASMA [Concomitant]
     Dosage: UNK
     Dates: start: 20070827

REACTIONS (10)
  - CARDIOGENIC SHOCK [None]
  - INJURY [None]
  - PAIN [None]
  - ANHEDONIA [None]
  - DEPRESSION [None]
  - ANXIETY [None]
  - UNEVALUABLE EVENT [None]
  - RENAL FAILURE [None]
  - FEAR [None]
  - DEATH [None]
